FAERS Safety Report 9529527 (Version 1)
Quarter: 2013Q3

REPORT INFORMATION
  Report Type: Spontaneous
  Country: FR (occurrence: FR)
  Receive Date: 20130917
  Receipt Date: 20130917
  Transmission Date: 20140515
  Serious: Yes (Hospitalization, Other)
  Sender: FDA-Public Use
  Company Number: FR-ABBVIE-13P-056-1145183-00

PATIENT
  Age: 47 Year
  Sex: Male

DRUGS (1)
  1. HUMIRA [Suspect]
     Indication: ANKYLOSING SPONDYLITIS
     Dosage: LAST INJECTION PERFORMED ON 06 AUG 13
     Dates: start: 201002, end: 20130806

REACTIONS (3)
  - Hypoaesthesia [Recovered/Resolved]
  - Myelitis [Unknown]
  - Arthropod bite [Unknown]
